FAERS Safety Report 5265453-8 (Version None)
Quarter: 2007Q1

REPORT INFORMATION
  Report Type: 
  Country: None (occurrence: None)
  Receive Date: 20070314
  Receipt Date: 20070313
  Transmission Date: 20070707
  Serious: Yes (Death)
  Sender: FDA-Public Use
  Company Number: AU-SANOFI-SYNTHELABO-A01200701957

PATIENT
  Age: 37 Year
  Sex: Male

DRUGS (2)
  1. ZOLPIDEM TARTRATE [Suspect]
     Indication: INSOMNIA
     Dosage: 1 DF
     Route: 048
  2. ALCOHOL [Concomitant]
     Dosage: UNK
     Route: 048
     Dates: start: 20070217

REACTIONS (2)
  - SLEEP WALKING [None]
  - TRANCE [None]
